FAERS Safety Report 15354233 (Version 1)
Quarter: 2018Q3

REPORT INFORMATION
  Report Type: Spontaneous
  Country: US (occurrence: US)
  Receive Date: 20180906
  Receipt Date: 20180906
  Transmission Date: 20181010
  Serious: No
  Sender: FDA-Public Use
  Company Number: US-UNICHEM PHARMACEUTICALS (USA) INC-UCM201807-000188

PATIENT
  Sex: Male

DRUGS (1)
  1. BISOPROLOL FUAMRATE 5 MG TABLET [Suspect]
     Active Substance: BISOPROLOL FUMARATE
     Indication: BLOOD PRESSURE MANAGEMENT
     Dates: start: 20180715

REACTIONS (1)
  - Rash [Unknown]
